FAERS Safety Report 17813140 (Version 1)
Quarter: 2020Q2

REPORT INFORMATION
  Report Type: Spontaneous
  Country: US (occurrence: US)
  Receive Date: 20200521
  Receipt Date: 20200521
  Transmission Date: 20200714
  Serious: Yes (Hospitalization)
  Sender: FDA-Public Use
  Company Number: US-BAYER-2020-085084

PATIENT
  Age: 89 Year
  Sex: Female

DRUGS (1)
  1. LOTRIMIN ANTIFUNGAL (MICONAZOLE NITRATE) [Suspect]
     Active Substance: MICONAZOLE NITRATE
     Indication: CORONAVIRUS INFECTION
     Dosage: UNK
     Route: 055
     Dates: start: 202004

REACTIONS (3)
  - Diarrhoea [None]
  - Product administered at inappropriate site [Unknown]
  - Drug effective for unapproved indication [Unknown]

NARRATIVE: CASE EVENT DATE: 202004
